FAERS Safety Report 9496727 (Version 1)
Quarter: 2013Q3

REPORT INFORMATION
  Report Type: Spontaneous
  Country: US (occurrence: None)
  Receive Date: 20130830
  Receipt Date: 20130830
  Transmission Date: 20140515
  Serious: Yes (Life-Threatening)
  Sender: FDA-Public Use
  Company Number: 2013239894

PATIENT
  Age: 86 Year
  Sex: Female

DRUGS (9)
  1. CORDARONE [Suspect]
     Dosage: 1 DF, 1X/DAY
     Dates: start: 201210, end: 20130731
  2. TAHOR (ATORVASTATIN CALCIUM) [Suspect]
  3. UVEDOSE (COLECALCIFEROL) [Concomitant]
  4. AMLOR (AMLODIPINE BESILATE) [Suspect]
     Route: 048
  5. RAMIPRIL (RAMIPRIL) [Suspect]
     Route: 048
  6. OGAST [Suspect]
     Route: 048
  7. PREVISCAN (FLUINDIONE) [Suspect]
     Route: 048
  8. LASILIX (FUROSEMIDE) [Suspect]
     Route: 048
  9. LEVOTHYROX (LEVOTHYROXINE SODIUM) INFUSION [Suspect]
     Route: 048

REACTIONS (2)
  - Lung disorder [None]
  - Acute respiratory distress syndrome [None]
